FAERS Safety Report 23231918 (Version 3)
Quarter: 2024Q1

REPORT INFORMATION
  Report Type: Report from Study
  Country: US (occurrence: US)
  Receive Date: 20231127
  Receipt Date: 20240110
  Transmission Date: 20240410
  Serious: Yes (Other)
  Sender: FDA-Public Use
  Company Number: US-BAYER-2023A160215

PATIENT
  Age: 69 Year
  Sex: Female

DRUGS (1)
  1. STIVARGA [Suspect]
     Active Substance: REGORAFENIB
     Indication: Colon cancer
     Dosage: 120 MG, QD (DAILY FOR 21 DAYS ON 7 DAYS OFF)

REACTIONS (17)
  - Mobility decreased [Unknown]
  - Bedridden [Unknown]
  - Nausea [Recovered/Resolved]
  - Head discomfort [Unknown]
  - Asthenia [Unknown]
  - Fatigue [Recovering/Resolving]
  - Decreased appetite [Recovered/Resolved]
  - Poor quality sleep [Recovering/Resolving]
  - Off label use [None]
  - Product dose omission issue [None]
  - Headache [Unknown]
  - Oral pain [Recovering/Resolving]
  - Blood pressure abnormal [Not Recovered/Not Resolved]
  - Fatigue [Not Recovered/Not Resolved]
  - Loss of personal independence in daily activities [Not Recovered/Not Resolved]
  - Pain in extremity [Not Recovered/Not Resolved]
  - Pain [Unknown]
